FAERS Safety Report 9580049 (Version 1)
Quarter: 2013Q3

REPORT INFORMATION
  Report Type: Spontaneous
  Country: US (occurrence: None)
  Receive Date: 20130916
  Receipt Date: 20130916
  Transmission Date: 20140515
  Serious: Yes (Hospitalization)
  Sender: FDA-Public Use
  Company Number: JPI-P-025269

PATIENT
  Age: 39 Year
  Sex: Female

DRUGS (1)
  1. XYREM [Suspect]
     Indication: NARCOLEPSY
     Dosage: 6 GM (3 GM, 2 IN 1 D), ORAL
     Route: 048
     Dates: start: 20120730

REACTIONS (8)
  - Delusional disorder, unspecified type [None]
  - Confusional state [None]
  - Hallucinations, mixed [None]
  - Hallucination, olfactory [None]
  - Back pain [None]
  - Depression [None]
  - Condition aggravated [None]
  - Anxiety [None]
